FAERS Safety Report 12369554 (Version 1)
Quarter: 2016Q2

REPORT INFORMATION
  Report Type: Spontaneous
  Country: US (occurrence: None)
  Receive Date: 20160513
  Receipt Date: 20160513
  Transmission Date: 20160815
  Serious: Yes (Disabling)
  Sender: FDA-Public Use
  Company Number: None

PATIENT
  Age: 57 Year
  Sex: Male
  Weight: 79.38 kg

DRUGS (4)
  1. MULTIVITAMIN [Concomitant]
     Active Substance: VITAMINS
  2. FISH OIL [Concomitant]
     Active Substance: FISH OIL
  3. CIPROFLOXACIN GENERIC [Suspect]
     Active Substance: CIPROFLOXACIN
     Indication: PROSTATIC DISORDER
     Dosage: 20 TABLET(S) TWICE A DAY TAKEN BY MOUTH
     Route: 048
     Dates: start: 20160413, end: 20160503
  4. NORCO [Concomitant]
     Active Substance: ACETAMINOPHEN\HYDROCODONE BITARTRATE

REACTIONS (11)
  - Muscle spasms [None]
  - Insomnia [None]
  - Balance disorder [None]
  - Dehydration [None]
  - Back disorder [None]
  - Neuralgia [None]
  - Mental impairment [None]
  - Muscle twitching [None]
  - Gait disturbance [None]
  - Pain in extremity [None]
  - Cognitive disorder [None]

NARRATIVE: CASE EVENT DATE: 20160413
